FAERS Safety Report 14020393 (Version 1)
Quarter: 2017Q3

REPORT INFORMATION
  Report Type: Spontaneous
  Country: US (occurrence: US)
  Receive Date: 20170928
  Receipt Date: 20170928
  Transmission Date: 20171128
  Serious: No
  Sender: FDA-Public Use
  Company Number: US-AVEDRO-AVE-2017-0222-AE

PATIENT
  Sex: Male

DRUGS (3)
  1. PHOTREXA VISCOUS [Suspect]
     Active Substance: RIBOFLAVIN 5^-PHOSPHATE SODIUM
     Indication: PRODUCT USED FOR UNKNOWN INDICATION
     Dosage: APPROXIMATELY 4 DROPS EVERY 2 MINUTES FOR 10 MINUTES DURING INITIAL SOAK PERIOD
     Route: 047
     Dates: start: 2017, end: 2017
  2. PHOTREXA VISCOUS [Suspect]
     Active Substance: RIBOFLAVIN 5^-PHOSPHATE SODIUM
     Dosage: APPROXIMATELY 2-4 DROPS EVERY 2 MINUTES FOR 30 MINUTES DURING IRRADIATION
     Route: 047
     Dates: start: 2017, end: 2017
  3. KXL SYSTEM [Suspect]
     Active Substance: DEVICE
     Indication: PRODUCT USED FOR UNKNOWN INDICATION
     Route: 047
     Dates: start: 2017, end: 2017

REACTIONS (2)
  - Therapy cessation [Unknown]
  - Discomfort [Unknown]

NARRATIVE: CASE EVENT DATE: 2017
